FAERS Safety Report 9721576 (Version 2)
Quarter: 2014Q2

REPORT INFORMATION
  Report Type: Report from Study
  Country: US (occurrence: US)
  Receive Date: 20131201
  Receipt Date: 20140609
  Transmission Date: 20141212
  Serious: No
  Sender: FDA-Public Use
  Company Number: US-009507513-1311USA012160

PATIENT
  Sex: Female

DRUGS (3)
  1. REBETOL [Suspect]
     Indication: HEPATITIS C
     Dosage: UNK
     Dates: end: 20130515
  2. VICTRELIS [Suspect]
     Indication: HEPATITIS C
     Dosage: UNK, QD
     Route: 048
     Dates: end: 20130515
  3. PEGASYS [Suspect]
     Indication: HEPATITIS C
     Dosage: UNK UNK, QW
     Dates: end: 20130515

REACTIONS (1)
  - Maternal exposure before pregnancy [Unknown]
